FAERS Safety Report 8582564-X (Version None)
Quarter: 2012Q3

REPORT INFORMATION
  Report Type: 
  Country: None (occurrence: None)
  Receive Date: 20120809
  Receipt Date: 20110817
  Transmission Date: 20120928
  Serious: Yes (Death)
  Sender: FDA-Public Use
  Company Number: US-ROCHE-1097919

PATIENT
  Sex: Male

DRUGS (2)
  1. ACTIVASE [Suspect]
     Indication: CEREBRAL ARTERY OCCLUSION
  2. ACTIVASE [Suspect]
     Indication: CEREBRAL INFARCTION

REACTIONS (1)
  - DEATH [None]
